FAERS Safety Report 19427229 (Version 1)
Quarter: 2021Q2

REPORT INFORMATION
  Report Type: Spontaneous
  Country: SI (occurrence: SI)
  Receive Date: 20210617
  Receipt Date: 20210617
  Transmission Date: 20210717
  Serious: Yes (Hospitalization, Other)
  Sender: FDA-Public Use
  Company Number: SI-OXFORD PHARMACEUTICALS, LLC-2112817

PATIENT
  Age: 45 Year
  Sex: Male

DRUGS (2)
  1. SERTRALINE HYDROCHLORIDE. [Suspect]
     Active Substance: SERTRALINE HYDROCHLORIDE
     Indication: DEPRESSION
  2. BRORPHINE [Suspect]
     Active Substance: BRORPHINE

REACTIONS (4)
  - Serotonin syndrome [Recovered/Resolved]
  - Acute kidney injury [Recovered/Resolved]
  - Rhabdomyolysis [Unknown]
  - Loss of consciousness [Recovered/Resolved]
